FAERS Safety Report 8084255 (Version 2)
Quarter: 2015Q1

REPORT INFORMATION
  Report Type: Spontaneous
  Country: US (occurrence: US)
  Receive Date: 20110810
  Receipt Date: 20150112
  Transmission Date: 20150721
  Serious: Yes (Hospitalization, Other)
  Sender: FDA-Public Use
  Company Number: US-ROCHE-794639

PATIENT
  Age: 17 Year
  Sex: Female
  Weight: 44.49 kg

DRUGS (1)
  1. ACCUTANE [Suspect]
     Active Substance: ISOTRETINOIN
     Indication: ACNE
     Route: 065
     Dates: start: 20031209, end: 20040612

REACTIONS (10)
  - Large intestine polyp [Unknown]
  - Dry skin [Unknown]
  - Oropharyngeal pain [Unknown]
  - Chapped lips [Unknown]
  - Irritable bowel syndrome [Unknown]
  - Colitis ulcerative [Unknown]
  - Inflammatory bowel disease [Unknown]
  - Lip dry [Unknown]
  - Dry eye [Unknown]
  - Blood cholesterol increased [Unknown]

NARRATIVE: CASE EVENT DATE: 20031209
